FAERS Safety Report 8233444-0 (Version None)
Quarter: 2012Q1

REPORT INFORMATION
  Report Type: 
  Country: None (occurrence: None)
  Receive Date: 20120326
  Receipt Date: 20120314
  Transmission Date: 20120608
  Serious: Yes (Hospitalization)
  Sender: FDA-Public Use
  Company Number: US-ELI_LILLY_AND_COMPANY-US201203004661

PATIENT
  Sex: Female

DRUGS (9)
  1. EVISTA [Suspect]
     Dosage: UNK
  2. NORVASC [Concomitant]
  3. LIPITOR [Concomitant]
  4. CENTRUM                            /00554501/ [Concomitant]
  5. PRILOSEC [Concomitant]
  6. FORTEO [Suspect]
     Indication: OSTEOPOROSIS
     Dosage: 20 UG, UNKNOWN
     Dates: start: 20050101
  7. OXYCODONE HCL [Concomitant]
  8. CALCIUM W/VITAMIN D NOS [Concomitant]
  9. FLONASE [Concomitant]

REACTIONS (5)
  - HIP FRACTURE [None]
  - SPINAL COMPRESSION FRACTURE [None]
  - BODY HEIGHT DECREASED [None]
  - DRUG INEFFECTIVE [None]
  - LOWER LIMB FRACTURE [None]
